FAERS Safety Report 4966294-9 (Version None)
Quarter: 2006Q2

REPORT INFORMATION
  Report Type: 
  Country: None (occurrence: None)
  Receive Date: 20060403
  Receipt Date: 20060322
  Transmission Date: 20061013
  Serious: Yes (Life-Threatening, Hospitalization, Other)
  Sender: FDA-Public Use
  Company Number: 2005145826

PATIENT
  Age: 7 Month
  Sex: Male

DRUGS (1)
  1. ZITHROMAX [Suspect]
     Indication: OTITIS MEDIA
     Dosage: 5 ML (300MG/15ML), ORAL
     Route: 048
     Dates: start: 20051014, end: 20051014

REACTIONS (7)
  - CYANOSIS [None]
  - DRUG SCREEN POSITIVE [None]
  - GRUNTING [None]
  - PHARMACEUTICAL PRODUCT COMPLAINT [None]
  - POOR QUALITY DRUG ADMINISTERED [None]
  - RESPIRATORY ARREST [None]
  - VOMITING [None]
